FAERS Safety Report 8473757-0 (Version None)
Quarter: 2012Q2

REPORT INFORMATION
  Report Type: 
  Country: None (occurrence: None)
  Receive Date: 20120628
  Receipt Date: 20111118
  Transmission Date: 20120825
  Serious: Yes (Death)
  Sender: FDA-Public Use
  Company Number: US-MYLANLABS-2011S1022052

PATIENT
  Age: 41 Year
  Sex: Male

DRUGS (11)
  1. METAXALONE [Concomitant]
  2. TRAZODONE HCL [Concomitant]
  3. TRIHEXYPHENIDYL HCL [Concomitant]
  4. METHOCARBAMOL [Concomitant]
  5. PAROXETINE [Concomitant]
  6. CLOZAPINE [Suspect]
     Route: 048
     Dates: start: 20100121
  7. OMEPRAZOLE [Concomitant]
  8. CLONAZEPAM [Concomitant]
  9. MELOXICAM [Concomitant]
  10. CLOZAPINE [Suspect]
     Route: 048
     Dates: start: 20100121
  11. HALOPERIDOL [Concomitant]

REACTIONS (1)
  - DEATH [None]
